FAERS Safety Report 5220749-0 (Version None)
Quarter: 2007Q1

REPORT INFORMATION
  Report Type: 
  Country: None (occurrence: None)
  Receive Date: 20070126
  Receipt Date: 20070117
  Transmission Date: 20070707
  Serious: Yes (Other)
  Sender: FDA-Public Use
  Company Number: US-PURDUE-USA_2006_0025946

PATIENT
  Age: 65 Year
  Sex: Female

DRUGS (4)
  1. OXYCONTIN [Suspect]
     Indication: BACK PAIN
     Dosage: 20 MG, BID
     Route: 048
     Dates: start: 20060113, end: 20060330
  2. OXYCONTIN [Suspect]
     Dosage: 20 MG, TID
     Route: 048
     Dates: start: 20060223, end: 20060330
  3. OXYCONTIN [Suspect]
     Dosage: 40 MG, BID
     Route: 048
     Dates: start: 20060330, end: 20060526
  4. OXYCONTIN [Suspect]
     Dosage: 20 MG, SEE TEXT
     Route: 048
     Dates: start: 20060526

REACTIONS (2)
  - DENTAL CARIES [None]
  - OSTEONECROSIS [None]
